FAERS Safety Report 14955595 (Version 2)
Quarter: 2018Q2

REPORT INFORMATION
  Report Type: Report from Study
  Country: FR (occurrence: FR)
  Receive Date: 20180531
  Receipt Date: 20180620
  Transmission Date: 20180711
  Serious: Yes (Other)
  Sender: FDA-Public Use
  Company Number: FR-INCYTE CORPORATION-2018IN005245

PATIENT

DRUGS (1)
  1. JAKAVI [Suspect]
     Active Substance: RUXOLITINIB
     Indication: MYELOFIBROSIS
     Dosage: 5 MG, BID
     Route: 065
     Dates: start: 20150114

REACTIONS (9)
  - Lymphocyte count decreased [Unknown]
  - Mean cell volume increased [Unknown]
  - Nasopharyngitis [Recovered/Resolved]
  - Anisocytosis [Unknown]
  - Rash [Recovered/Resolved]
  - Platelet count decreased [Unknown]
  - Rectal haemorrhage [Unknown]
  - Mean cell haemoglobin concentration increased [Unknown]
  - Monocyte count decreased [Unknown]

NARRATIVE: CASE EVENT DATE: 20170311
